FAERS Safety Report 7704079-0 (Version None)
Quarter: 2011Q3

REPORT INFORMATION
  Report Type: 
  Country: None (occurrence: None)
  Receive Date: 20110729
  Receipt Date: 20100709
  Transmission Date: 20111222
  Serious: Yes (Other)
  Sender: FDA-Public Use
  Company Number: US-JNJFOC-20100703309

PATIENT
  Age: 42 Year
  Sex: Male
  Weight: 88.4514 kg

DRUGS (9)
  1. LYRICA [Concomitant]
  2. IMODIUM A-D [Suspect]
     Indication: DIARRHOEA
     Dosage: 1 BOTTLE A DAY
  3. OPANA [Concomitant]
  4. PRISTIQ [Concomitant]
  5. LIMBREL (OTHER ANTIINFL./ANTIRHEUM AGENTS, NON-STEROID) [Concomitant]
  6. MORPHINE (MORPHINE) TABLET [Concomitant]
  7. CELEXA [Concomitant]
  8. IMODIUM A-D [Suspect]
     Indication: DIARRHOEA
     Dosage: 24 MG, IN 1 DAY, ORAL
     Route: 048
  9. LOMOTIL [Suspect]
     Indication: DIARRHOEA
     Dosage: 2 DOSE(S), 1 IN 4 HOUR
     Dates: start: 20090101

REACTIONS (1)
  - OVERDOSE [None]
